FAERS Safety Report 25233290 (Version 1)
Quarter: 2025Q2

REPORT INFORMATION
  Report Type: Spontaneous
  Country: US (occurrence: US)
  Receive Date: 20250424
  Receipt Date: 20250424
  Transmission Date: 20250716
  Serious: Yes (Other)
  Sender: COOPERSURGICAL
  Company Number: US-COOPERSURGICAL, INC.-2025CPS003100

PATIENT
  Age: 39 Year
  Sex: Female
  Weight: 86.168 kg

DRUGS (2)
  1. PARAGARD T 380A [Suspect]
     Active Substance: COPPER
     Route: 015
     Dates: start: 20131201, end: 20220511
  2. NICORETTE [Concomitant]
     Active Substance: NICOTINE
     Dates: start: 201805, end: 202209

REACTIONS (7)
  - Uterine leiomyoma [Unknown]
  - Reproductive complication associated with device [Unknown]
  - Device breakage [Recovered/Resolved]
  - Foreign body in reproductive tract [Recovered/Resolved]
  - Complication of device removal [Recovered/Resolved]
  - Anxiety [Recovered/Resolved]
  - Discomfort [Unknown]

NARRATIVE: CASE EVENT DATE: 20220120
